FAERS Safety Report 7240797-9 (Version None)
Quarter: 2011Q1

REPORT INFORMATION
  Report Type: 
  Country: None (occurrence: None)
  Receive Date: 20110120
  Receipt Date: 20110120
  Transmission Date: 20110831
  Serious: Yes (Other)
  Sender: FDA-Public Use
  Company Number: None

PATIENT
  Age: 74 Year
  Sex: Female

DRUGS (1)
  1. LUCENTIS [Suspect]
     Indication: MACULAR DEGENERATION
     Dosage: 0.5MG EVERY MONTH / PRN INTRAOCULAR
     Route: 031

REACTIONS (5)
  - RETINAL ARTERY OCCLUSION [None]
  - RED BLOOD CELL SEDIMENTATION RATE INCREASED [None]
  - ENDOPHTHALMITIS [None]
  - OPTIC NEUROPATHY [None]
  - C-REACTIVE PROTEIN INCREASED [None]
